FAERS Safety Report 24666080 (Version 1)
Quarter: 2024Q4

REPORT INFORMATION
  Report Type: Spontaneous
  Country: EU (occurrence: EU)
  Receive Date: 20241126
  Receipt Date: 20241126
  Transmission Date: 20250115
  Serious: Yes (Other)
  Sender: Harrow Health
  Company Number: None

PATIENT

DRUGS (5)
  1. CYCLOSPORINE [Interacting]
     Active Substance: CYCLOSPORINE
     Indication: Dry eye
     Dosage: 1 DROP IN THE EVENING IN EACH EYE
     Route: 047
     Dates: start: 201907
  2. DOXYCYCLINE HYDROCHLORIDE [Interacting]
     Active Substance: DOXYCYCLINE HYDROCHLORIDE
     Indication: Lyme disease
     Dosage: 150MG X2 A DAY
     Route: 048
     Dates: start: 202409, end: 202409
  3. HYDROXYCHLOROQUINE SULFATE [Concomitant]
     Active Substance: HYDROXYCHLOROQUINE SULFATE
     Indication: Sjogren^s syndrome
     Dosage: UNK
     Route: 048
     Dates: start: 2005
  4. DESLORATADINE [Concomitant]
     Active Substance: DESLORATADINE
     Indication: Hypersensitivity
     Dosage: 1 TABLET A DAY ALL YEAR ROUND.
     Route: 048
     Dates: start: 2005
  5. FLUTICASONE PROPIONATE [Concomitant]
     Active Substance: FLUTICASONE PROPIONATE
     Indication: Asthma
     Dosage: UNK
     Route: 055

REACTIONS (4)
  - Idiopathic intracranial hypertension [Recovered/Resolved]
  - Tension headache [Recovered/Resolved]
  - Drug interaction [Unknown]
  - Product use in unapproved indication [Unknown]

NARRATIVE: CASE EVENT DATE: 20190701
